FAERS Safety Report 23912236 (Version 1)
Quarter: 2024Q2

REPORT INFORMATION
  Report Type: Spontaneous
  Country: US (occurrence: US)
  Receive Date: 20240528
  Receipt Date: 20240528
  Transmission Date: 20240716
  Serious: No
  Sender: FDA-Public Use
  Company Number: US-Cardinal Health 414-NPHS-AE-24-24

PATIENT
  Sex: Female

DRUGS (1)
  1. KIT FOR THE PREPARATION OF TECHNETIUM TC99M SESTAMIBI [Suspect]
     Active Substance: TECHNETIUM TC-99M SESTAMIBI
     Indication: Scan myocardial perfusion
     Route: 065
     Dates: start: 20240415, end: 20240415

REACTIONS (2)
  - Drug ineffective [Recovered/Resolved]
  - Product with quality issue administered [Recovered/Resolved]

NARRATIVE: CASE EVENT DATE: 20240415
